FAERS Safety Report 8917989 (Version 2)
Quarter: 2012Q4

REPORT INFORMATION
  Report Type: 
  Country: IT (occurrence: IT)
  Receive Date: 20121120
  Receipt Date: 20121205
  Transmission Date: 20130627
  Serious: Yes (Hospitalization, Other)
  Sender: FDA-Public Use
  Company Number: PHHY2012IT105384

PATIENT
  Age: 86 Year
  Sex: Male

DRUGS (2)
  1. WARFARIN [Suspect]
     Indication: DEEP VEIN THROMBOSIS
     Route: 048
     Dates: start: 201010
  2. LEVOCARNITINE [Interacting]
     Dosage: 1 g, daily
     Route: 030

REACTIONS (7)
  - Anaemia [Recovering/Resolving]
  - Fatigue [Recovering/Resolving]
  - Pallor [Recovering/Resolving]
  - Coagulopathy [Recovering/Resolving]
  - International normalised ratio increased [Recovering/Resolving]
  - Swelling [Recovering/Resolving]
  - Drug interaction [Unknown]
